FAERS Safety Report 5319064-6 (Version None)
Quarter: 2007Q2

REPORT INFORMATION
  Report Type: 
  Country: None (occurrence: None)
  Receive Date: 20070508
  Receipt Date: 20070427
  Transmission Date: 20071010
  Serious: Yes (Hospitalization, Other)
  Sender: FDA-Public Use
  Company Number: US-ROCHE-489129

PATIENT
  Age: 37 Year
  Sex: Female
  Weight: 103.9 kg

DRUGS (11)
  1. ROCALTROL [Suspect]
     Indication: CALCIUM METABOLISM DISORDER
     Route: 048
  2. OS-CAL [Concomitant]
     Route: 048
  3. UNSPECIFIED DRUG [Concomitant]
  4. ASPIRIN [Concomitant]
  5. BENICAR [Concomitant]
  6. DEMADEX [Concomitant]
  7. APRESOLINE [Concomitant]
  8. LANTUS [Concomitant]
  9. PROCRIT [Concomitant]
  10. SODIUM BICARBONATE [Concomitant]
  11. ZOFRAN [Concomitant]

REACTIONS (4)
  - BLOOD GLUCOSE INCREASED [None]
  - HYPERPHOSPHATAEMIA [None]
  - HYPOCALCAEMIA [None]
  - PITTING OEDEMA [None]
